FAERS Safety Report 10084785 (Version 2)
Quarter: 2014Q2

REPORT INFORMATION
  Report Type: Spontaneous
  Country: US (occurrence: AU)
  Receive Date: 20140417
  Receipt Date: 20140424
  Transmission Date: 20141212
  Serious: Yes (Life-Threatening, Hospitalization, Disabling, Other)
  Sender: FDA-Public Use
  Company Number: AU-FRI-1000066618

PATIENT
  Age: 21 Year
  Sex: Male
  Weight: 155 kg

DRUGS (4)
  1. SAPHRIS [Suspect]
     Indication: BIPOLAR DISORDER
     Dosage: 10 MG
     Route: 060
     Dates: start: 201301, end: 20130325
  2. SAPHRIS [Suspect]
     Dosage: 20 MG
     Route: 060
     Dates: start: 20130326
  3. QUETIAPINE FUMARATE [Concomitant]
     Dosage: 25 MG
     Dates: start: 2011
  4. VALPROATE SODIUM [Concomitant]

REACTIONS (3)
  - Convulsion [Not Recovered/Not Resolved]
  - Weight decreased [Not Recovered/Not Resolved]
  - Rash [Unknown]
